FAERS Safety Report 16567951 (Version 1)
Quarter: 2019Q3

REPORT INFORMATION
  Report Type: Spontaneous
  Country: AT (occurrence: AT)
  Receive Date: 20190712
  Receipt Date: 20190712
  Transmission Date: 20191004
  Serious: Yes (Hospitalization)
  Sender: FDA-Public Use
  Company Number: AT-TEVA-2019-AT-1075784

PATIENT
  Age: 84 Year
  Sex: Female

DRUGS (5)
  1. CAL D VITA [Concomitant]
     Route: 065
  2. DICLOBENE 75 MG - AMPULLEN [Suspect]
     Active Substance: DICLOFENAC SODIUM
     Indication: BACK PAIN
     Route: 042
     Dates: start: 20190206, end: 20190206
  3. CLOPIDOGREL PLUS PHARMA 75 MG [Concomitant]
     Route: 065
  4. METAGELAN 500 MG [Concomitant]
     Route: 065
  5. CONCOR 5 MG [Concomitant]
     Active Substance: BISOPROLOL FUMARATE
     Route: 065

REACTIONS (1)
  - Type I hypersensitivity [Recovered/Resolved]

NARRATIVE: CASE EVENT DATE: 20190206
